FAERS Safety Report 21158828 (Version 1)
Quarter: 2022Q3

REPORT INFORMATION
  Report Type: Spontaneous
  Country: GR (occurrence: GR)
  Receive Date: 20220802
  Receipt Date: 20220802
  Transmission Date: 20221027
  Serious: Yes (Hospitalization)
  Sender: FDA-Public Use
  Company Number: GR-CELLTRION INC.-2022GR012099

PATIENT

DRUGS (5)
  1. RITUXIMAB [Suspect]
     Active Substance: RITUXIMAB
     Indication: Waldenstrom^s macroglobulinaemia
  2. RITUXIMAB [Suspect]
     Active Substance: RITUXIMAB
     Indication: Bing-Neel syndrome
  3. FLUDARABINE [Suspect]
     Active Substance: FLUDARABINE PHOSPHATE
     Indication: Waldenstrom^s macroglobulinaemia
  4. CYCLOPHOSPHAMIDE [Suspect]
     Active Substance: CYCLOPHOSPHAMIDE
     Indication: Waldenstrom^s macroglobulinaemia
  5. IBRUTINIB [Suspect]
     Active Substance: IBRUTINIB
     Indication: Bing-Neel syndrome

REACTIONS (3)
  - Hospitalisation [Unknown]
  - Therapy partial responder [Unknown]
  - Off label use [Unknown]
